FAERS Safety Report 4990820-7 (Version None)
Quarter: 2006Q2

REPORT INFORMATION
  Report Type: 
  Country: None (occurrence: None)
  Receive Date: 20060427
  Receipt Date: 20060419
  Transmission Date: 20061013
  Serious: Yes (Death)
  Sender: FDA-Public Use
  Company Number: 2006-01549

PATIENT
  Age: 65 Year
  Sex: Male

DRUGS (4)
  1. PREDNISONE [Suspect]
     Indication: LUNG INJURY
     Dosage: 40 MG, BID, INTRAVENOUS
     Route: 042
  2. PREDNISONE [Suspect]
     Indication: PROPHYLAXIS
     Dosage: 40 MG, BID, INTRAVENOUS
     Route: 042
  3. METHYLPREDNISOLONE [Suspect]
     Indication: MYCOSIS FUNGOIDES
     Dosage: 8 MG, DAILY
  4. INTERFERON (INTERFERON) [Concomitant]

REACTIONS (3)
  - MULTI-ORGAN FAILURE [None]
  - RENAL FAILURE [None]
  - TUMOUR LYSIS SYNDROME [None]
